FAERS Safety Report 21416770 (Version 2)
Quarter: 2022Q4

REPORT INFORMATION
  Report Type: Spontaneous
  Country: FR (occurrence: FR)
  Receive Date: 20221006
  Receipt Date: 20221007
  Transmission Date: 20230112
  Serious: Yes (Other)
  Sender: FDA-Public Use
  Company Number: FR-NOVARTISPH-NVSC2022FR220854

PATIENT
  Age: 30 Year
  Sex: Male

DRUGS (3)
  1. DOXYCYCLINE [Suspect]
     Active Substance: DOXYCYCLINE
     Indication: Product used for unknown indication
     Dosage: UNK
     Route: 065
  2. CABOTEGRAVIR [Suspect]
     Active Substance: CABOTEGRAVIR
     Indication: HIV infection
     Dosage: 1 DF, 1 DOSE EACH, 600
     Route: 030
     Dates: start: 20220321
  3. RILPIVIRINE [Suspect]
     Active Substance: RILPIVIRINE
     Indication: HIV test positive
     Dosage: 1 DOSAGE FORM (1DF, 900)
     Route: 030
     Dates: start: 20220321

REACTIONS (23)
  - Scar [Unknown]
  - Neuropathy peripheral [Unknown]
  - Neck pain [Not Recovered/Not Resolved]
  - Injection site erythema [Not Recovered/Not Resolved]
  - Arthropathy [Not Recovered/Not Resolved]
  - Fatigue [Recovered/Resolved]
  - Fall [Not Recovered/Not Resolved]
  - Fat tissue increased [Unknown]
  - Mood altered [Recovered/Resolved]
  - Pain [Unknown]
  - Multiple injuries [Unknown]
  - Wound [Unknown]
  - Skin mass [Not Recovered/Not Resolved]
  - Injection site plaque [Not Recovered/Not Resolved]
  - Mobility decreased [Recovered/Resolved]
  - Local reaction [Not Recovered/Not Resolved]
  - Gait disturbance [Unknown]
  - Tachycardia [Unknown]
  - Abdominal pain upper [Recovered/Resolved]
  - Rash [Not Recovered/Not Resolved]
  - Arthralgia [Not Recovered/Not Resolved]
  - Injection site pain [Unknown]
  - Nausea [Recovered/Resolved]

NARRATIVE: CASE EVENT DATE: 20220101
